FAERS Safety Report 15638743 (Version 1)
Quarter: 2018Q4

REPORT INFORMATION
  Report Type: Spontaneous
  Country: US (occurrence: US)
  Receive Date: 20181120
  Receipt Date: 20181120
  Transmission Date: 20190205
  Serious: No
  Sender: FDA-Public Use
  Company Number: US-JNJFOC-20180240012

PATIENT
  Age: 75 Year
  Sex: Male

DRUGS (9)
  1. IMBRUVICA [Suspect]
     Active Substance: IBRUTINIB
     Indication: CHRONIC LYMPHOCYTIC LEUKAEMIA
     Route: 048
     Dates: start: 20141114
  2. ASPIRIN. [Concomitant]
     Active Substance: ASPIRIN
  3. VITAMIN D [Concomitant]
     Active Substance: CHOLECALCIFEROL
  4. IMDUR [Concomitant]
     Active Substance: ISOSORBIDE MONONITRATE
  5. NADOLOL. [Concomitant]
     Active Substance: NADOLOL
  6. NITROSTAT [Concomitant]
     Active Substance: NITROGLYCERIN
  7. PRAVASTATIN. [Concomitant]
     Active Substance: PRAVASTATIN
  8. RANEXA [Concomitant]
     Active Substance: RANOLAZINE
  9. RANITIDINE. [Concomitant]
     Active Substance: RANITIDINE

REACTIONS (1)
  - Product dose omission [Unknown]

NARRATIVE: CASE EVENT DATE: 20180217
